FAERS Safety Report 7905836-8 (Version None)
Quarter: 2011Q4

REPORT INFORMATION
  Report Type: 
  Country: None (occurrence: None)
  Receive Date: 20111110
  Receipt Date: 20111103
  Transmission Date: 20120403
  Serious: Yes (Hospitalization)
  Sender: FDA-Public Use
  Company Number: PL-UCBSA-035530

PATIENT
  Age: 34 Year
  Sex: Female
  Weight: 70 kg

DRUGS (8)
  1. MELOXAM [Concomitant]
     Indication: RHEUMATOID ARTHRITIS
     Route: 048
     Dates: start: 20071114
  2. METHYLPREDNISOLONE [Concomitant]
     Indication: RHEUMATOID ARTHRITIS
     Route: 048
     Dates: start: 20090805
  3. NORDETTE-28 [Concomitant]
     Indication: ORAL CONTRACEPTION
     Route: 048
     Dates: start: 20080101
  4. CONTIX [Concomitant]
     Indication: GASTRITIS PROPHYLAXIS
     Route: 048
     Dates: start: 20090805
  5. CERTOLIZUMAB PEGOL [Suspect]
     Indication: RHEUMATOID ARTHRITIS
     Dosage: NO. OF DOSES RECEIVED: 28
     Route: 058
     Dates: start: 20100504, end: 20110617
  6. METHOTREXATE [Concomitant]
     Route: 048
     Dates: start: 20090805
  7. ACIDUM FOLICUM [Concomitant]
     Indication: RHEUMATOID ARTHRITIS
     Route: 048
     Dates: start: 20081106
  8. METHOTREXATE [Concomitant]
     Indication: RHEUMATOID ARTHRITIS
     Route: 048
     Dates: start: 20081106, end: 20090805

REACTIONS (1)
  - RESPIRATORY TRACT INFECTION [None]
